FAERS Safety Report 11108075 (Version 1)
Quarter: 2015Q2

REPORT INFORMATION
  Report Type: Spontaneous
  Country: US (occurrence: US)
  Receive Date: 20150512
  Receipt Date: 20150512
  Transmission Date: 20150821
  Serious: No
  Sender: FDA-Public Use
  Company Number: US-GLAXOSMITHKLINE-US2015026235

PATIENT
  Sex: Female

DRUGS (1)
  1. ABREVA [Suspect]
     Active Substance: DOCOSANOL
     Indication: ORAL HERPES
     Dosage: UNK
     Dates: start: 20150219

REACTIONS (6)
  - Condition aggravated [Unknown]
  - Oral herpes [Unknown]
  - Erythema [Unknown]
  - Rash [Unknown]
  - Drug administration error [Unknown]
  - Inflammation [Unknown]
